FAERS Safety Report 24027938 (Version 1)
Quarter: 2024Q2

REPORT INFORMATION
  Report Type: Spontaneous
  Country: BR (occurrence: BR)
  Receive Date: 20240628
  Receipt Date: 20240628
  Transmission Date: 20240716
  Serious: Yes (Hospitalization, Other)
  Sender: FDA-Public Use
  Company Number: BR-ASTELLAS-2024US018177

PATIENT
  Sex: Male

DRUGS (3)
  1. PROGRAF [Suspect]
     Active Substance: TACROLIMUS
     Indication: Product used for unknown indication
     Route: 042
     Dates: start: 20240605, end: 20240612
  2. PROGRAF [Suspect]
     Active Substance: TACROLIMUS
     Route: 042
     Dates: start: 20240613, end: 20240617
  3. PROGRAF [Suspect]
     Active Substance: TACROLIMUS
     Route: 042
     Dates: start: 20240618

REACTIONS (4)
  - Craniocerebral injury [Unknown]
  - Cerebral haemorrhage [Unknown]
  - Thrombocytopenia [Unknown]
  - Wrist fracture [Unknown]
